FAERS Safety Report 24754732 (Version 1)
Quarter: 2024Q4

REPORT INFORMATION
  Report Type: Spontaneous
  Country: US (occurrence: US)
  Receive Date: 20241219
  Receipt Date: 20241219
  Transmission Date: 20250115
  Serious: Yes (Other)
  Sender: DR REDDYS
  Company Number: US-DRL-USA-LIT/USA/24/0018588

PATIENT
  Age: 42 Year
  Sex: Female

DRUGS (7)
  1. MERCAPTOPURINE [Suspect]
     Active Substance: MERCAPTOPURINE
     Indication: Postcolectomy panenteritis
  2. MERCAPTOPURINE [Suspect]
     Active Substance: MERCAPTOPURINE
  3. TIRZEPATIDE [Suspect]
     Active Substance: TIRZEPATIDE
     Indication: Weight increased
     Dates: start: 202310
  4. TIRZEPATIDE [Suspect]
     Active Substance: TIRZEPATIDE
     Indication: Hypercholesterolaemia
     Dates: start: 202312
  5. PREDNISONE [Concomitant]
     Active Substance: PREDNISONE
     Indication: Postcolectomy panenteritis
  6. MESALAMINE [Concomitant]
     Active Substance: MESALAMINE
     Indication: Colitis ulcerative
  7. INFLIXIMAB [Concomitant]
     Active Substance: INFLIXIMAB
     Indication: Colitis ulcerative

REACTIONS (4)
  - Hepatotoxicity [Recovered/Resolved]
  - Drug metabolite level high [Unknown]
  - Drug interaction [Unknown]
  - Product use in unapproved indication [Unknown]
